FAERS Safety Report 20170577 (Version 10)
Quarter: 2022Q4

REPORT INFORMATION
  Report Type: Report from Study
  Country: CA (occurrence: None)
  Receive Date: 20211210
  Receipt Date: 20221018
  Transmission Date: 20230113
  Serious: Yes (Death, Life-Threatening, Disabling)
  Sender: FDA-Public Use
  Company Number: CA-ROCHE-2976587

PATIENT
  Age: 59 Year
  Sex: Male

DRUGS (27)
  1. TENECTEPLASE [Suspect]
     Active Substance: TENECTEPLASE
     Indication: Thrombolysis
     Dosage: MOST RECENT DOSE (DOSE CONCENTRATION: 5 MG/ML AND TOTAL VOLUME: 4.1 ML) OF STUDY DRUG PRIOR TO AE/SA
     Route: 042
     Dates: start: 20211205, end: 20211205
  2. PLASMALYTE A [Concomitant]
     Indication: Prophylaxis against dehydration
     Route: 042
     Dates: start: 20211205, end: 20211207
  3. FENTANYL [Concomitant]
     Active Substance: FENTANYL
     Indication: Prophylaxis
     Route: 042
     Dates: start: 20211205, end: 20211207
  4. IOHEXOL [Concomitant]
     Active Substance: IOHEXOL
     Route: 042
     Dates: start: 20211205, end: 20211205
  5. IOHEXOL [Concomitant]
     Active Substance: IOHEXOL
     Route: 042
     Dates: start: 20211206, end: 20211206
  6. IOHEXOL [Concomitant]
     Active Substance: IOHEXOL
     Route: 013
     Dates: start: 20211205, end: 20211205
  7. LIDOCAINE [Concomitant]
     Active Substance: LIDOCAINE
     Indication: Prophylaxis
     Route: 042
     Dates: start: 20211205, end: 20211205
  8. MIDAZOLAM [Concomitant]
     Active Substance: MIDAZOLAM
     Indication: Sedation
     Route: 042
     Dates: start: 20211206, end: 20211207
  9. SODIUM CHLORIDE [Concomitant]
     Active Substance: SODIUM CHLORIDE
     Route: 042
     Dates: start: 20211206, end: 20211206
  10. SODIUM CHLORIDE [Concomitant]
     Active Substance: SODIUM CHLORIDE
     Route: 042
     Dates: start: 20211206, end: 20211207
  11. SODIUM CHLORIDE [Concomitant]
     Active Substance: SODIUM CHLORIDE
     Route: 042
     Dates: start: 20211205, end: 20211205
  12. CHLORHEXIDINE [Concomitant]
     Active Substance: CHLORHEXIDINE
     Route: 048
     Dates: start: 20211206, end: 20211206
  13. HYDROMORPHONE [Concomitant]
     Active Substance: HYDROMORPHONE
     Indication: Subarachnoid haemorrhage
     Route: 042
     Dates: start: 20211207, end: 20211207
  14. METRONIDAZOLE [Concomitant]
     Active Substance: METRONIDAZOLE
     Indication: Prophylaxis
     Route: 042
     Dates: start: 20211206, end: 20211207
  15. PANTOPRAZOLE [Concomitant]
     Active Substance: PANTOPRAZOLE
     Indication: Gastrooesophageal reflux prophylaxis
     Route: 042
     Dates: start: 20211205, end: 20211207
  16. POLYETHYLENE GLYCOL [Concomitant]
     Active Substance: POLYETHYLENE GLYCOL
     Indication: Prophylaxis
     Route: 048
     Dates: start: 20211206, end: 20211207
  17. FIBRINOGEN [Concomitant]
     Active Substance: FIBRINOGEN HUMAN
     Indication: Subarachnoid haemorrhage
     Route: 042
     Dates: start: 20211205, end: 20211205
  18. HYDROCORTISONE SODIUM SUCCINATE [Concomitant]
     Active Substance: HYDROCORTISONE SODIUM SUCCINATE
     Indication: Subarachnoid haemorrhage
     Route: 042
     Dates: start: 20211205, end: 20211205
  19. MANNITOL [Concomitant]
     Active Substance: MANNITOL
     Indication: Subarachnoid haemorrhage
     Route: 042
     Dates: start: 20211206, end: 20211207
  20. PHENYLEPHRINE [Concomitant]
     Active Substance: PHENYLEPHRINE HYDROCHLORIDE
     Indication: Subarachnoid haemorrhage
     Dosage: 150 UG
     Route: 042
     Dates: start: 20211205, end: 20211205
  21. PHENYLEPHRINE [Concomitant]
     Active Substance: PHENYLEPHRINE HYDROCHLORIDE
     Dosage: 200 UG
     Route: 042
     Dates: start: 20211205, end: 20211206
  22. PROPOFOL [Concomitant]
     Active Substance: PROPOFOL
     Indication: Subarachnoid haemorrhage
     Route: 042
     Dates: start: 20211205, end: 20211206
  23. ROCURONIUM [Concomitant]
     Active Substance: ROCURONIUM BROMIDE
     Indication: Subarachnoid haemorrhage
     Route: 042
     Dates: start: 20211205, end: 20211205
  24. CEFTRIAXONE [Concomitant]
     Active Substance: CEFTRIAXONE
     Indication: Subarachnoid haemorrhage
     Route: 042
     Dates: start: 20211206, end: 20211207
  25. LABETALOL [Concomitant]
     Active Substance: LABETALOL\LABETALOL HYDROCHLORIDE
     Indication: Subarachnoid haemorrhage
     Route: 042
     Dates: start: 20211207, end: 20211207
  26. NOREPINEPHRINE [Concomitant]
     Active Substance: NOREPINEPHRINE
     Indication: Subarachnoid haemorrhage
     Dosage: 16000 UG
     Route: 042
     Dates: start: 20211207, end: 20211207
  27. VASOPRESSIN [Concomitant]
     Active Substance: VASOPRESSIN
     Indication: Subarachnoid haemorrhage
     Route: 042
     Dates: start: 20211206, end: 20211207

REACTIONS (4)
  - Cerebral artery perforation [Not Recovered/Not Resolved]
  - Brain herniation [Fatal]
  - Subarachnoid haemorrhage [Not Recovered/Not Resolved]
  - Intraventricular haemorrhage [Not Recovered/Not Resolved]

NARRATIVE: CASE EVENT DATE: 20211205
